FAERS Safety Report 12431203 (Version 2)
Quarter: 2017Q1

REPORT INFORMATION
  Report Type: Spontaneous
  Country: US (occurrence: US)
  Receive Date: 20160603
  Receipt Date: 20170228
  Transmission Date: 20170428
  Serious: No
  Sender: FDA-Public Use
  Company Number: US-ASTRAZENECA-2016SE45647

PATIENT
  Sex: Female

DRUGS (2)
  1. NEXIUM [Suspect]
     Active Substance: ESOMEPRAZOLE MAGNESIUM
     Dosage: GENERIC, 40 MG UNKNOWN UNKNOWN
     Route: 048
  2. NEXIUM [Suspect]
     Active Substance: ESOMEPRAZOLE MAGNESIUM
     Dosage: 40.0MG UNKNOWN
     Route: 048
     Dates: start: 2006

REACTIONS (8)
  - Adhesion [Unknown]
  - Chest discomfort [Unknown]
  - Drug ineffective [Unknown]
  - Dyspnoea [Unknown]
  - Oesophageal pain [Unknown]
  - Pain [Unknown]
  - Abdominal pain upper [Unknown]
  - Eructation [Unknown]

NARRATIVE: CASE EVENT DATE: 201603
